FAERS Safety Report 11303219 (Version 2)
Quarter: 2015Q3

REPORT INFORMATION
  Report Type: Spontaneous
  Country: NO (occurrence: NO)
  Receive Date: 20150723
  Receipt Date: 20150810
  Transmission Date: 20151125
  Serious: Yes (Hospitalization)
  Sender: FDA-Public Use
  Company Number: PHHY2015NO086853

PATIENT
  Age: 73 Year
  Sex: Female

DRUGS (5)
  1. ATACAND [Concomitant]
     Active Substance: CANDESARTAN CILEXETIL
     Indication: HYPERTENSION
     Route: 065
  2. CALCIGRAN FORTE [Concomitant]
     Indication: OSTEOPOROSIS
     Dosage: 1 DF (1000 MG/ 800 IE), QD
     Route: 048
  3. CALSIUM [Concomitant]
     Indication: PRODUCT USED FOR UNKNOWN INDICATION
     Route: 065
  4. CANDESARTAN [Concomitant]
     Active Substance: CANDESARTAN
     Indication: HYPERTENSION
     Dosage: 8 MG, QD
     Route: 048
  5. ACLASTA [Suspect]
     Active Substance: ZOLEDRONIC ACID
     Indication: OSTEOPOROSIS
     Dosage: UNK UNK, Q12MO
     Route: 042
     Dates: start: 20150707, end: 20150707

REACTIONS (14)
  - Abdominal pain [Not Recovered/Not Resolved]
  - Vomiting [Unknown]
  - Peripheral swelling [Not Recovered/Not Resolved]
  - Pain in extremity [Not Recovered/Not Resolved]
  - Abdominal pain upper [Recovering/Resolving]
  - Myalgia [Recovering/Resolving]
  - Back pain [Recovering/Resolving]
  - Movement disorder [Unknown]
  - Nausea [Recovering/Resolving]
  - Hepatic enzyme increased [Unknown]
  - Headache [Recovering/Resolving]
  - Pain [Not Recovered/Not Resolved]
  - General physical health deterioration [Not Recovered/Not Resolved]
  - Sleep disorder [Unknown]

NARRATIVE: CASE EVENT DATE: 20150708
